FAERS Safety Report 19885743 (Version 2)
Quarter: 2021Q4

REPORT INFORMATION
  Report Type: Spontaneous
  Country: US (occurrence: US)
  Receive Date: 20210927
  Receipt Date: 20211022
  Transmission Date: 20220304
  Serious: Yes (Hospitalization, Other)
  Sender: FDA-Public Use
  Company Number: US-ROCHE-2876215

PATIENT
  Weight: 99.88 kg

DRUGS (2)
  1. KLONOPIN [Suspect]
     Active Substance: CLONAZEPAM
     Indication: Bipolar disorder
     Dosage: NO
     Route: 048
     Dates: start: 1995, end: 2021
  2. KLONOPIN [Suspect]
     Active Substance: CLONAZEPAM
     Dosage: NO
     Route: 048
     Dates: start: 2021, end: 202105

REACTIONS (8)
  - Suicidal ideation [Unknown]
  - Somnolence [Unknown]
  - Insomnia [Recovering/Resolving]
  - Amnesia [Not Recovered/Not Resolved]
  - Fatigue [Unknown]
  - Hallucination [Unknown]
  - Therapy cessation [Unknown]
  - Off label use [Unknown]

NARRATIVE: CASE EVENT DATE: 20210101
